FAERS Safety Report 22268114 (Version 6)
Quarter: 2023Q2

REPORT INFORMATION
  Report Type: Spontaneous
  Country: BR (occurrence: BR)
  Receive Date: 20230430
  Receipt Date: 20230630
  Transmission Date: 20230722
  Serious: Yes (Life-Threatening, Other)
  Sender: FDA-Public Use
  Company Number: BR-002147023-NVSC2023BR097368

PATIENT
  Age: 40 Year
  Sex: Female
  Weight: 74 kg

DRUGS (4)
  1. TEGRETOL XR [Suspect]
     Active Substance: CARBAMAZEPINE
     Indication: Seizure
     Dosage: 400 MG, QD,(60 CE)
     Route: 048
     Dates: start: 201808
  2. TEGRETOL XR [Suspect]
     Active Substance: CARBAMAZEPINE
     Dosage: 1 DOSAGE FORM (200 MG), QD AT NIGHT
     Route: 048
     Dates: start: 20230410, end: 202305
  3. TEGRETOL [Suspect]
     Active Substance: CARBAMAZEPINE
     Indication: Product used for unknown indication
     Route: 065
  4. CALCIUM [Concomitant]
     Active Substance: CALCIUM
     Indication: Product used for unknown indication
     Dosage: UNK
     Route: 065

REACTIONS (6)
  - Seizure [Recovered/Resolved with Sequelae]
  - Cerebral disorder [Recovered/Resolved]
  - Fear [Not Recovered/Not Resolved]
  - Emotional disorder [Unknown]
  - Ill-defined disorder [Unknown]
  - Anticonvulsant drug level decreased [Unknown]

NARRATIVE: CASE EVENT DATE: 20230407
